FAERS Safety Report 7215463-6 (Version None)
Quarter: 2011Q1

REPORT INFORMATION
  Report Type: 
  Country: None (occurrence: None)
  Receive Date: 20110107
  Receipt Date: 20101216
  Transmission Date: 20110831
  Serious: Yes (Congenital Anomaly)
  Sender: FDA-Public Use
  Company Number: A0681660A

PATIENT
  Sex: Female

DRUGS (2)
  1. PAXIL [Suspect]
     Indication: ANXIETY DISORDER
     Dosage: 20MG PER DAY
     Dates: start: 19980101, end: 20050601
  2. PRENATAL VITAMINS [Concomitant]

REACTIONS (4)
  - LIMB ASYMMETRY [None]
  - DRUG EXPOSURE DURING PREGNANCY [None]
  - MULTIPLE CONGENITAL ABNORMALITIES [None]
  - GAIT DISTURBANCE [None]
